FAERS Safety Report 10273737 (Version 1)
Quarter: 2014Q1

REPORT INFORMATION
  Report Type: Spontaneous
  Country: US (occurrence: None)
  Receive Date: 20140306
  Receipt Date: 20140306
  Transmission Date: 20141002
  Serious: Yes (Other)
  Sender: FDA-Public Use
  Company Number: 163-21880-13092473

PATIENT
  Age: 61 Year
  Sex: Female
  Weight: 99.8 kg

DRUGS (6)
  1. REVLIMID [Suspect]
     Indication: PLASMA CELL MYELOMA
     Dosage: 14 IN 21 D
     Route: 048
     Dates: start: 20130701
  2. VITAMIN D (ERGOCALCIFEROL) (UNKNOWN) [Concomitant]
  3. ASPIRIN (ACETYLSALICYLIC ACID) [Concomitant]
  4. ATIVAN (LORAZEPAM) [Concomitant]
  5. TRAMADOL HCL ER (UNKNOWN) [Concomitant]
  6. TYLENOL EXTRA STRENGTH (PARACETAMOL)UNKNOWN [Concomitant]

REACTIONS (1)
  - Phlebitis [None]
